FAERS Safety Report 7350701-0 (Version None)
Quarter: 2011Q1

REPORT INFORMATION
  Report Type: 
  Country: None (occurrence: None)
  Receive Date: 20110314
  Receipt Date: 20110303
  Transmission Date: 20110831
  Serious: Yes (Hospitalization, Other)
  Sender: FDA-Public Use
  Company Number: US-JNJFOC-20110303690

PATIENT
  Age: 15 Year
  Sex: Male

DRUGS (1)
  1. RISPERDONE [Suspect]
     Indication: PRODUCT USED FOR UNKNOWN INDICATION
     Dosage: 0.25MG IN THE MORNING AND 0.5 MG AT NIGHT
     Route: 065

REACTIONS (4)
  - URINARY RETENTION [None]
  - DIET REFUSAL [None]
  - AUTONOMIC NERVOUS SYSTEM IMBALANCE [None]
  - CATATONIA [None]
